FAERS Safety Report 4443882-X (Version None)
Quarter: 2004Q3

REPORT INFORMATION
  Report Type: 
  Country: None (occurrence: None)
  Receive Date: 20040729
  Receipt Date: 20040517
  Transmission Date: 20050211
  Serious: Yes (Other)
  Sender: FDA-Public Use
  Company Number: US-JNJFOC-20040406490

PATIENT
  Age: 76 Year
  Sex: Female

DRUGS (3)
  1. RISPERDAL [Suspect]
     Indication: ANXIETY
     Dosage: 1 MG, 1 IN 1 DAY, ORAL
     Route: 048
     Dates: start: 20010101, end: 20040501
  2. RISPERDAL [Suspect]
     Indication: DEPRESSION
     Dosage: 1 MG, 1 IN 1 DAY, ORAL
     Route: 048
     Dates: start: 20010101, end: 20040501
  3. AMBIEN [Concomitant]

REACTIONS (4)
  - GLUCOSE TOLERANCE IMPAIRED [None]
  - LETHARGY [None]
  - MIGRAINE [None]
  - NIGHTMARE [None]
